FAERS Safety Report 20578683 (Version 2)
Quarter: 2022Q2

REPORT INFORMATION
  Report Type: Spontaneous
  Country: US (occurrence: US)
  Receive Date: 20220310
  Receipt Date: 20220404
  Transmission Date: 20220721
  Serious: No
  Sender: FDA-Public Use
  Company Number: US-ALKERMES INC.-ALK-2022-001140

PATIENT
  Age: 35 Year
  Sex: Female
  Weight: 129.71 kg

DRUGS (1)
  1. ARISTADA [Suspect]
     Active Substance: ARIPIPRAZOLE LAUROXIL
     Indication: Bipolar II disorder
     Dosage: 882 MILLIGRAM
     Route: 030
     Dates: start: 20220308

REACTIONS (3)
  - Off label use [Not Recovered/Not Resolved]
  - Needle issue [Recovered/Resolved]
  - Product dose omission issue [Recovered/Resolved]

NARRATIVE: CASE EVENT DATE: 20220308
